FAERS Safety Report 5959395-X (Version None)
Quarter: 2008Q4

REPORT INFORMATION
  Report Type: 
  Country: None (occurrence: None)
  Receive Date: 20081120
  Receipt Date: 20080805
  Transmission Date: 20090506
  Serious: No
  Sender: FDA-Public Use
  Company Number: A0741144A

PATIENT

DRUGS (2)
  1. VERAMYST [Suspect]
     Route: 045
  2. UNKNOWN [Concomitant]

REACTIONS (1)
  - RASH GENERALISED [None]
